FAERS Safety Report 8200086-2 (Version None)
Quarter: 2012Q1

REPORT INFORMATION
  Report Type: 
  Country: None (occurrence: None)
  Receive Date: 20120312
  Receipt Date: 20120306
  Transmission Date: 20120608
  Serious: Yes (Other)
  Sender: FDA-Public Use
  Company Number: US-SHIRE-ALL1-2012-01298

PATIENT
  Sex: Male

DRUGS (1)
  1. ELAPRASE [Suspect]
     Indication: MUCOPOLYSACCHARIDOSIS II
     Dosage: 6 MG, 1X/WEEK(2 VIALS WEEKLY)
     Route: 041
     Dates: start: 20100202

REACTIONS (2)
  - DENTAL CARIES [None]
  - AORTIC DILATATION [None]
